FAERS Safety Report 6378370-7 (Version None)
Quarter: 2009Q3

REPORT INFORMATION
  Report Type: 
  Country: None (occurrence: None)
  Receive Date: 20090925
  Receipt Date: 20090713
  Transmission Date: 20100115
  Serious: Yes (Other)
  Sender: FDA-Public Use
  Company Number: US-ASTRAZENECA-2009UW12836

PATIENT
  Age: 32 Year
  Sex: Female
  Weight: 99.8 kg

DRUGS (8)
  1. SEROQUEL [Suspect]
     Indication: SCHIZOPHRENIA
     Dosage: UP TO 700 MG
     Route: 048
     Dates: start: 20050101, end: 20080101
  2. SEROQUEL [Suspect]
     Indication: INSOMNIA
     Dosage: UP TO 700 MG
     Route: 048
     Dates: start: 20050101, end: 20080101
  3. RISPERDAL [Concomitant]
     Dates: start: 20080101
  4. ABILIFY [Concomitant]
     Dates: start: 20070101
  5. GEODON [Concomitant]
     Dates: start: 20030101, end: 20060101
  6. CYMBALTA [Concomitant]
     Dates: start: 20070101
  7. AMBIEN CR [Concomitant]
     Dates: start: 20090101
  8. KLONOPIN [Concomitant]
     Dates: start: 20030101

REACTIONS (1)
  - PANCREATITIS ACUTE [None]
